FAERS Safety Report 7522973-0 (Version None)
Quarter: 2011Q2

REPORT INFORMATION
  Report Type: 
  Country: None (occurrence: None)
  Receive Date: 20110603
  Receipt Date: 20110526
  Transmission Date: 20111010
  Serious: Yes (Death, Other)
  Sender: FDA-Public Use
  Company Number: JP-CELGENEUS-087-21880-11053228

PATIENT
  Sex: Male

DRUGS (9)
  1. DECADRON [Concomitant]
     Dosage: 40 MILLIGRAM
     Route: 041
     Dates: start: 20101229, end: 20101229
  2. LANSOPRAZOLE [Concomitant]
     Indication: PROPHYLAXIS
     Dosage: 15 MILLIGRAM
     Route: 048
     Dates: start: 20101108, end: 20110108
  3. VALTREX [Concomitant]
     Indication: PROPHYLAXIS
     Dosage: 500 MILLIGRAM
     Route: 048
     Dates: start: 20101108, end: 20110108
  4. REVLIMID [Suspect]
     Indication: MULTIPLE MYELOMA
     Dosage: 5 MILLIGRAM
     Route: 048
     Dates: start: 20101128, end: 20101202
  5. REVLIMID [Suspect]
     Dosage: 5 MILLIGRAM
     Route: 048
     Dates: start: 20101227, end: 20110107
  6. DECADRON [Concomitant]
     Indication: MULTIPLE MYELOMA
     Dosage: 40 MILLIGRAM
     Route: 041
     Dates: start: 20101115, end: 20101118
  7. DECADRON [Concomitant]
     Dosage: 40 MILLIGRAM
     Route: 041
     Dates: start: 20101129, end: 20101130
  8. NORVASC [Concomitant]
     Indication: HYPERTENSION
     Dosage: 2.5 MILLIGRAM
     Route: 048
     Dates: start: 20101108, end: 20110108
  9. REVLIMID [Suspect]
     Dosage: 5 MILLIGRAM
     Route: 048
     Dates: start: 20101207, end: 20101216

REACTIONS (5)
  - BRAIN STEM SYNDROME [None]
  - SEPSIS [None]
  - THROMBOCYTOPENIA [None]
  - NEUTROPENIA [None]
  - HAEMORRHAGE [None]
